FAERS Safety Report 23692396 (Version 1)
Quarter: 2024Q2

REPORT INFORMATION
  Report Type: Spontaneous
  Country: MA (occurrence: MA)
  Receive Date: 20240401
  Receipt Date: 20240401
  Transmission Date: 20240716
  Serious: Yes (Death, Hospitalization)
  Sender: FDA-Public Use
  Company Number: MA-MYLANLABS-2024M1029094

PATIENT
  Age: 5 Decade
  Sex: Female

DRUGS (1)
  1. METHOTREXATE [Suspect]
     Active Substance: METHOTREXATE
     Indication: Psoriasis
     Dosage: 15 MILLIGRAM, QD
     Route: 030

REACTIONS (10)
  - Toxic skin eruption [Fatal]
  - Pancytopenia [Fatal]
  - Rectal haemorrhage [Fatal]
  - Melaena [Fatal]
  - Dyspnoea [Fatal]
  - Septic shock [Fatal]
  - Multiple organ dysfunction syndrome [Fatal]
  - Accidental overdose [Fatal]
  - Product dispensing error [Fatal]
  - Inappropriate schedule of product administration [Fatal]
